FAERS Safety Report 14598854 (Version 1)
Quarter: 2018Q1

REPORT INFORMATION
  Report Type: Spontaneous
  Country: US (occurrence: US)
  Receive Date: 20180302
  Receipt Date: 20180302
  Transmission Date: 20180509
  Serious: Yes (Hospitalization)
  Sender: FDA-Public Use
  Company Number: None

PATIENT
  Age: 52 Year
  Sex: Female
  Weight: 41 kg

DRUGS (14)
  1. RADIATION [Suspect]
     Active Substance: RADIATION THERAPY
     Indication: METASTASES TO CENTRAL NERVOUS SYSTEM
     Dosage: ?          OTHER ROUTE:RADIATION?
     Dates: start: 20180215, end: 20180223
  2. BENZONATATE. [Concomitant]
     Active Substance: BENZONATATE
  3. ALBUTEROL. [Concomitant]
     Active Substance: ALBUTEROL
  4. FIORICET [Concomitant]
     Active Substance: ACETAMINOPHEN\BUTALBITAL\CAFFEINE
  5. SENEXON [Concomitant]
     Active Substance: SENNOSIDES A AND B
  6. AMLODIPINE [Concomitant]
     Active Substance: AMLODIPINE BESYLATE
  7. CLONAZEPAM. [Concomitant]
     Active Substance: CLONAZEPAM
  8. PEMBROLIZUMAB. [Suspect]
     Active Substance: PEMBROLIZUMAB
     Indication: NON-SMALL CELL LUNG CANCER
     Dosage: ?          OTHER FREQUENCY:Q21 DAYS;?
     Route: 042
     Dates: start: 20180202, end: 20180202
  9. RADIATION [Suspect]
     Active Substance: RADIATION THERAPY
     Indication: NON-SMALL CELL LUNG CANCER METASTATIC
     Dosage: ?          OTHER ROUTE:RADIATION?
     Dates: start: 20180215, end: 20180223
  10. DEXTROMETHORPAAN [Concomitant]
  11. DOCUSATE-SENNA [Concomitant]
  12. ONDANSETRON [Concomitant]
     Active Substance: ONDANSETRON
  13. OXYCODONE [Concomitant]
     Active Substance: OXYCODONE
  14. OXYCONTIN [Concomitant]
     Active Substance: OXYCODONE HYDROCHLORIDE

REACTIONS (3)
  - Back pain [None]
  - Therapy cessation [None]
  - Chest pain [None]

NARRATIVE: CASE EVENT DATE: 20180212
